FAERS Safety Report 4690934-5 (Version None)
Quarter: 2005Q2

REPORT INFORMATION
  Report Type: 
  Country: None (occurrence: None)
  Receive Date: 20050610
  Receipt Date: 20050531
  Transmission Date: 20051028
  Serious: Yes (Hospitalization)
  Sender: FDA-Public Use
  Company Number: HQWYE028231MAY05

PATIENT
  Age: 78 Year
  Sex: Male

DRUGS (9)
  1. CORDARONE [Suspect]
     Dosage: 200 MG 1X PER 1 DAY ORAL
     Route: 048
  2. EQUANIL (MEPROBAMATE, CAPSULE) [Suspect]
     Dosage: ORAL
     Route: 048
     Dates: start: 20050215
  3. PREVISCAN (FLUINDIONE,) [Suspect]
     Dosage: 20 MG TALET-DOSE ORAL
     Route: 048
     Dates: end: 20050421
  4. RAMIPRIL [Suspect]
     Dosage: ORAL
     Route: 048
  5. MUCOMYST [Concomitant]
  6. POTASSIUM CHLORIDE [Concomitant]
  7. SPASFON (PHLOROGLUCINOL/TRIMETHYLPHLOROGLUCINOL) [Concomitant]
  8. CARBOSYLANE (CHARCOAL, ACTIVATED/DIMETICONE) [Concomitant]
  9. OXEOL (BAMBUTEROL HYDROCHLORIDE) [Concomitant]

REACTIONS (5)
  - GENERAL PHYSICAL HEALTH DETERIORATION [None]
  - HAEMATURIA [None]
  - INFLAMMATION [None]
  - PROTEINURIA [None]
  - VASCULAR PURPURA [None]
